FAERS Safety Report 7866130-7 (Version None)
Quarter: 2011Q4

REPORT INFORMATION
  Report Type: 
  Country: None (occurrence: None)
  Receive Date: 20111028
  Receipt Date: 20110428
  Transmission Date: 20120403
  Serious: No
  Sender: FDA-Public Use
  Company Number: US-GLAXOSMITHKLINE-A0924922A

PATIENT
  Age: 75 Year
  Sex: Male

DRUGS (4)
  1. ADVAIR DISKUS 100/50 [Suspect]
     Indication: CHRONIC OBSTRUCTIVE PULMONARY DISEASE
     Route: 055
  2. ANTIHYPERTENSIVE [Concomitant]
     Indication: BLOOD PRESSURE
  3. SPIRIVA [Concomitant]
  4. WATER PILL [Concomitant]

REACTIONS (2)
  - HAEMOPTYSIS [None]
  - COUGH [None]
